FAERS Safety Report 8889082 (Version 1)
Quarter: 2012Q4

REPORT INFORMATION
  Report Type: 
  Country: US (occurrence: US)
  Receive Date: 20121106
  Receipt Date: 20121106
  Transmission Date: 20130627
  Serious: No
  Sender: FDA-Public Use
  Company Number: US-ASTRAZENECA-2012SE82342

PATIENT
  Age: 50 Year
  Sex: Female

DRUGS (2)
  1. SYMBICORT PMDI [Suspect]
     Indication: ASTHMA
     Dosage: UNKNOWN
     Route: 055
  2. ANTIBIOTICS [Suspect]
     Route: 065

REACTIONS (2)
  - Pneumonia [Unknown]
  - Dyspnoea [Unknown]
